FAERS Safety Report 11349265 (Version 1)
Quarter: 2015Q3

REPORT INFORMATION
  Report Type: Spontaneous
  Country: GB (occurrence: GB)
  Receive Date: 20150807
  Receipt Date: 20150807
  Transmission Date: 20151125
  Serious: Yes (Hospitalization)
  Sender: FDA-Public Use
  Company Number: GB-ACCORD-032693

PATIENT
  Age: 75 Year
  Weight: 73 kg

DRUGS (7)
  1. SERTRALINE [Concomitant]
     Active Substance: SERTRALINE HYDROCHLORIDE
     Route: 048
  2. OMEPRAZOLE. [Concomitant]
     Active Substance: OMEPRAZOLE
     Route: 048
  3. CARBOPLATIN. [Suspect]
     Active Substance: CARBOPLATIN
     Indication: LUNG NEOPLASM MALIGNANT
     Dosage: CYCLE 2
     Route: 042
     Dates: start: 20150506
  4. AMIODARONE [Concomitant]
     Active Substance: AMIODARONE
     Route: 048
  5. COCODAMOL [Concomitant]
     Active Substance: ACETAMINOPHEN\CODEINE PHOSPHATE
     Route: 048
  6. ETOPOSIDE. [Suspect]
     Active Substance: ETOPOSIDE
     Indication: LUNG NEOPLASM MALIGNANT
     Dosage: CYCLE 02
     Route: 042
     Dates: start: 20150506
  7. ROSUVASTATIN/ROSUVASTATIN CALCIUM [Concomitant]
     Route: 048

REACTIONS (2)
  - Neutropenic sepsis [Not Recovered/Not Resolved]
  - Blood electrolytes abnormal [Not Recovered/Not Resolved]

NARRATIVE: CASE EVENT DATE: 20150519
